FAERS Safety Report 14242815 (Version 1)
Quarter: 2017Q4

REPORT INFORMATION
  Report Type: Spontaneous
  Country: KR (occurrence: KR)
  Receive Date: 20171201
  Receipt Date: 20171201
  Transmission Date: 20180321
  Serious: Yes (Death, Hospitalization, Other)
  Sender: FDA-Public Use
  Company Number: KR-BAYER-2017-226135

PATIENT
  Age: 68 Year
  Sex: Female

DRUGS (3)
  1. ACETYLSALICYLIC ACID({=100 MG) [Suspect]
     Active Substance: ASPIRIN
     Dosage: 300 MG, UNK
  2. HEPARIN [Interacting]
     Active Substance: HEPARIN SODIUM
     Dosage: 6000 IU, UNK
  3. CLOPIDOGREL [Interacting]
     Active Substance: CLOPIDOGREL BISULFATE
     Dosage: 600 MG, UNK

REACTIONS (9)
  - Coagulopathy [Fatal]
  - Pericardial haemorrhage [None]
  - Haemodynamic instability [None]
  - Ventricular dysfunction [Fatal]
  - Drug administration error [None]
  - Shock [Fatal]
  - Labelled drug-drug interaction medication error [None]
  - Organ failure [Fatal]
  - Haemothorax [None]
